FAERS Safety Report 7211451 (Version 7)
Quarter: 2013Q2

REPORT INFORMATION
  Report Type: Report from Study
  Country: US (occurrence: US)
  Receive Date: 20091210
  Receipt Date: 20130510
  Transmission Date: 20140414
  Serious: Yes (Other)
  Sender: FDA-Public Use
  Company Number: US-ABBOTT-09P-163-0611855-00

PATIENT
  Age: 19 Month
  Sex: Female
  Weight: 11 kg

DRUGS (8)
  1. RITONAVIR ORAL SOLUTION [Suspect]
     Indication: HIV INFECTION
     Route: 048
     Dates: start: 20080729, end: 20091027
  2. RITONAVIR ORAL SOLUTION [Suspect]
     Route: 048
     Dates: start: 20091109
  3. ATAZANAVIR [Concomitant]
     Indication: HIV INFECTION
     Route: 048
     Dates: start: 20080729, end: 20091027
  4. ATAZANAVIR [Concomitant]
     Route: 048
     Dates: start: 20091109
  5. LAMIVUDINE [Concomitant]
     Indication: PRODUCT USED FOR UNKNOWN INDICATION
     Route: 048
     Dates: start: 20080729, end: 20091027
  6. LAMIVUDINE [Concomitant]
     Route: 048
     Dates: start: 20091109
  7. ZIDOVUDINE [Concomitant]
     Indication: PRODUCT USED FOR UNKNOWN INDICATION
     Route: 048
     Dates: start: 20080729, end: 20091027
  8. ZIDOVUDINE [Concomitant]
     Route: 048
     Dates: start: 20091109

REACTIONS (2)
  - Blood alkaline phosphatase increased [Recovered/Resolved]
  - Arthralgia [Not Recovered/Not Resolved]
